FAERS Safety Report 17610857 (Version 1)
Quarter: 2020Q1

REPORT INFORMATION
  Report Type: Spontaneous
  Country: US (occurrence: US)
  Receive Date: 20200330
  Receipt Date: 20200330
  Transmission Date: 20200409
  Serious: Yes (Life-Threatening, Hospitalization)
  Sender: FDA-Public Use
  Company Number: None

PATIENT
  Age: 75 Year
  Sex: Female

DRUGS (1)
  1. VANCOMYCIN 1.5G PER 300ML FLEX BAG [Suspect]
     Active Substance: VANCOMYCIN
     Indication: PROPHYLAXIS
     Dosage: ?          OTHER DOSE:1.5GM (ONLY 300ML);?
     Route: 042
     Dates: start: 20200330, end: 20200330

REACTIONS (6)
  - Vomiting [None]
  - Dyspnoea [None]
  - Erythema [None]
  - Cardio-respiratory arrest [None]
  - Pulseless electrical activity [None]
  - Burning sensation [None]

NARRATIVE: CASE EVENT DATE: 20200330
